FAERS Safety Report 7638519-2 (Version None)
Quarter: 2011Q3

REPORT INFORMATION
  Report Type: 
  Country: None (occurrence: None)
  Receive Date: 20110727
  Receipt Date: 20110718
  Transmission Date: 20111222
  Serious: Yes (Hospitalization)
  Sender: FDA-Public Use
  Company Number: PHHY2011DE57975

PATIENT
  Sex: Female
  Weight: 30 kg

DRUGS (5)
  1. METHYLPHENIDATE [Suspect]
     Dosage: UNK UKN, UNK
     Route: 048
     Dates: start: 20110112
  2. RITALIN LA [Suspect]
     Indication: ATTENTION DEFICIT/HYPERACTIVITY DISORDER
     Dosage: 10 MG, QD
     Route: 048
     Dates: start: 20101129, end: 20101201
  3. RITALIN LA [Suspect]
     Dosage: 20 MG, QD
     Dates: start: 20101221
  4. METHYLPHENIDATE [Suspect]
     Indication: ATTENTION DEFICIT/HYPERACTIVITY DISORDER
     Dosage: UNK UKN, UNK
     Route: 048
     Dates: start: 20101109, end: 20101201
  5. METHYLPHENIDATE HYDROCHLORIDE [Suspect]
     Indication: ATTENTION DEFICIT/HYPERACTIVITY DISORDER
     Dosage: 5 MG, QD
     Route: 048
     Dates: start: 20110523

REACTIONS (3)
  - ORAL HERPES [None]
  - NAUSEA [None]
  - PHOTODERMATOSIS [None]
